FAERS Safety Report 6237619-1 (Version None)
Quarter: 2009Q2

REPORT INFORMATION
  Report Type: 
  Country: None (occurrence: None)
  Receive Date: 20090619
  Receipt Date: 20090609
  Transmission Date: 20091009
  Serious: Yes (Hospitalization)
  Sender: FDA-Public Use
  Company Number: FR-MERCK-0906FRA00031

PATIENT
  Age: 74 Year
  Sex: Female

DRUGS (5)
  1. ZETIA [Suspect]
     Indication: HYPERCHOLESTEROLAEMIA
     Route: 048
     Dates: start: 20000101
  2. HYDROXYUREA [Suspect]
     Indication: POLYCYTHAEMIA VERA
     Route: 048
     Dates: start: 20030101, end: 20090218
  3. CELIPROLOL HYDROCHLORIDE [Suspect]
     Indication: HYPERTENSION
     Route: 048
     Dates: start: 20000101, end: 20090218
  4. TELMISARTAN [Suspect]
     Indication: HYPERTENSION
     Route: 048
     Dates: start: 20000101, end: 20090218
  5. ASPIRIN LYSINE [Suspect]
     Route: 048
     Dates: start: 20000101

REACTIONS (2)
  - PYREXIA [None]
  - RASH ERYTHEMATOUS [None]
